FAERS Safety Report 9375480 (Version 2)
Quarter: 2013Q4

REPORT INFORMATION
  Report Type: Spontaneous
  Country: BR (occurrence: BR)
  Receive Date: 20130628
  Receipt Date: 20131004
  Transmission Date: 20140711
  Serious: Yes (Hospitalization)
  Sender: FDA-Public Use
  Company Number: BR-ASTRAZENECA-2013SE48287

PATIENT
  Age: 57 Year
  Sex: Male
  Weight: 100 kg

DRUGS (5)
  1. BRILINTA [Suspect]
     Route: 048
     Dates: start: 2012
  2. ATORVASTATIN [Concomitant]
     Indication: BLOOD CHOLESTEROL INCREASED
  3. VASTAREL [Concomitant]
  4. GLIFAGE [Concomitant]
     Indication: DIABETES MELLITUS
  5. MONOCORDIL [Concomitant]

REACTIONS (1)
  - Coronary artery restenosis [Not Recovered/Not Resolved]
